FAERS Safety Report 5722053-0 (Version None)
Quarter: 2008Q2

REPORT INFORMATION
  Report Type: 
  Country: None (occurrence: None)
  Receive Date: 20080429
  Receipt Date: 20080417
  Transmission Date: 20081010
  Serious: Yes (Hospitalization)
  Sender: FDA-Public Use
  Company Number: US-ELI_LILLY_AND_COMPANY-US200804004641

PATIENT
  Sex: Female
  Weight: 104.31 kg

DRUGS (7)
  1. BYETTA [Suspect]
     Indication: TYPE 2 DIABETES MELLITUS
     Dosage: 5 UG, 2/D
     Route: 058
     Dates: start: 20061001, end: 20061101
  2. BYETTA [Suspect]
     Dosage: 10 UG, 2/D
     Route: 058
     Dates: start: 20061101, end: 20061101
  3. BYETTA [Suspect]
     Dosage: 10 UG, 2/D
     Route: 058
     Dates: start: 20080301
  4. METFORMIN HCL [Concomitant]
     Indication: DIABETES MELLITUS
     Dosage: 1000 MG, 2/D
     Route: 048
     Dates: end: 20061101
  5. METFORMIN HCL [Concomitant]
     Dosage: 1000 MG, 2/D
     Route: 048
     Dates: start: 20061101
  6. NOVOLIN [Concomitant]
     Indication: TYPE 2 DIABETES MELLITUS
     Dosage: 40 U, 2/D
     Route: 058
     Dates: start: 20061101
  7. NOVOLIN [Concomitant]
     Dosage: UNK, 2/D
     Route: 058
     Dates: start: 20080414

REACTIONS (3)
  - BLOOD GLUCOSE DECREASED [None]
  - BLOOD GLUCOSE INCREASED [None]
  - CERVICAL SPINAL STENOSIS [None]
